FAERS Safety Report 16596950 (Version 1)
Quarter: 2019Q3

REPORT INFORMATION
  Report Type: Spontaneous
  Country: US (occurrence: US)
  Receive Date: 20190718
  Receipt Date: 20190718
  Transmission Date: 20191004
  Serious: Yes (Hospitalization, Other)
  Sender: FDA-Public Use
  Company Number: None

PATIENT
  Age: 55 Year
  Sex: Female

DRUGS (2)
  1. VANCOMYOCIN [Suspect]
     Active Substance: VANCOMYCIN
  2. VANCOMYOCIN [Concomitant]

REACTIONS (16)
  - Confusional state [None]
  - Vomiting [None]
  - Blood sodium decreased [None]
  - Agitation [None]
  - Overdose [None]
  - Blood chloride decreased [None]
  - Nausea [None]
  - Haemoglobin decreased [None]
  - Haematocrit decreased [None]
  - Product dose omission [None]
  - Dialysis [None]
  - Carbon dioxide abnormal [None]
  - Blood pH decreased [None]
  - Acute kidney injury [None]
  - Body temperature decreased [None]
  - Electrocardiogram QT prolonged [None]

NARRATIVE: CASE EVENT DATE: 20190716
